FAERS Safety Report 11758813 (Version 1)
Quarter: 2015Q4

REPORT INFORMATION
  Report Type: Spontaneous
  Country: CA (occurrence: CA)
  Receive Date: 20151120
  Receipt Date: 20151120
  Transmission Date: 20160304
  Serious: Yes (Life-Threatening, Hospitalization)
  Sender: FDA-Public Use
  Company Number: CA-TEVA-611050ACC

PATIENT
  Age: 7 Year
  Sex: Male
  Weight: 20 kg

DRUGS (5)
  1. ASA [Concomitant]
     Active Substance: ASPIRIN
  2. ENALAPRIL [Concomitant]
     Active Substance: ENALAPRIL
  3. CLONIDINE. [Suspect]
     Active Substance: CLONIDINE
     Indication: THERAPY CESSATION
     Dosage: 60 MILLIGRAM DAILY;
     Route: 048
  4. AMLODIPINE [Concomitant]
     Active Substance: AMLODIPINE BESYLATE
  5. CLONIDINE. [Suspect]
     Active Substance: CLONIDINE
     Dosage: 45 MILLIGRAM DAILY;
     Route: 048

REACTIONS (2)
  - Drug dispensing error [Not Recovered/Not Resolved]
  - Hypertensive crisis [Not Recovered/Not Resolved]
